FAERS Safety Report 9722721 (Version 3)
Quarter: 2013Q4

REPORT INFORMATION
  Report Type: Spontaneous
  Country: JP (occurrence: JP)
  Receive Date: 20131202
  Receipt Date: 20131212
  Transmission Date: 20140711
  Serious: Yes (Other)
  Sender: FDA-Public Use
  Company Number: JP-PFIZER INC-2013331126

PATIENT
  Age: 51 Year
  Sex: Female

DRUGS (3)
  1. OXALIPLATIN [Suspect]
     Indication: COLON CANCER STAGE IV
     Dosage: UNK
  2. FLUOROURACIL [Concomitant]
     Indication: COLON CANCER STAGE IV
     Dosage: UNK
  3. FOLINIC ACID [Concomitant]
     Indication: COLON CANCER STAGE IV
     Dosage: UNK

REACTIONS (1)
  - Thrombocytopenia [Recovered/Resolved]
